FAERS Safety Report 14914802 (Version 1)
Quarter: 2018Q2

REPORT INFORMATION
  Report Type: Spontaneous
  Country: US (occurrence: US)
  Receive Date: 20180518
  Receipt Date: 20180518
  Transmission Date: 20180711
  Serious: Yes (Other)
  Sender: FDA-Public Use
  Company Number: US-BAYER-2018-093609

PATIENT
  Sex: Female

DRUGS (1)
  1. CIPRO [Suspect]
     Active Substance: CIPROFLOXACIN HYDROCHLORIDE
     Indication: URINARY TRACT INFECTION
     Dosage: UNK
     Dates: start: 201605

REACTIONS (6)
  - Tendonitis [None]
  - Myasthenia gravis [None]
  - Neuropathy peripheral [None]
  - Tendon rupture [None]
  - Nervous system disorder [None]
  - Pain [None]

NARRATIVE: CASE EVENT DATE: 201605
